FAERS Safety Report 18223555 (Version 3)
Quarter: 2020Q4

REPORT INFORMATION
  Report Type: Spontaneous
  Country: JP (occurrence: JP)
  Receive Date: 20200902
  Receipt Date: 20201007
  Transmission Date: 20210113
  Serious: Yes (Other)
  Sender: FDA-Public Use
  Company Number: JP-JNJFOC-20200700878

PATIENT
  Age: 32 Year
  Sex: Male

DRUGS (17)
  1. PENTASA [Concomitant]
     Active Substance: MESALAMINE
     Indication: COLITIS ULCERATIVE
     Dosage: 1500 MILLIGRAM, QD
     Route: 048
     Dates: start: 20200120, end: 20200525
  2. PREDONINE [Concomitant]
     Active Substance: PREDNISOLONE
     Dosage: 20 MILLIGRAM, QD
     Route: 048
     Dates: start: 20200218, end: 20200302
  3. PREDONINE [Concomitant]
     Active Substance: PREDNISOLONE
     Dosage: 10 MILLIGRAM, QD
     Route: 048
     Dates: start: 20200415, end: 20200427
  4. PREDONINE [Concomitant]
     Active Substance: PREDNISOLONE
     Dosage: 30 MILLIGRAM, QD
     Route: 048
     Dates: start: 20200612
  5. STERONEMA [Concomitant]
     Active Substance: BETAMETHASONE SODIUM PHOSPHATE
     Dosage: UNK
     Route: 065
     Dates: start: 20200401
  6. BUDESONIDE. [Concomitant]
     Active Substance: BUDESONIDE
     Indication: COLITIS ULCERATIVE
     Route: 054
     Dates: start: 20200120, end: 20200127
  7. PREDONINE [Concomitant]
     Active Substance: PREDNISOLONE
     Indication: COLITIS ULCERATIVE
     Dosage: 30 MILLIGRAM, QD
     Route: 048
     Dates: start: 20200204, end: 20200217
  8. PENTASA [Concomitant]
     Active Substance: MESALAMINE
     Dosage: 2250 MILLIGRAM, QD
     Route: 048
     Dates: start: 20200526, end: 20200611
  9. PREDONINE [Concomitant]
     Active Substance: PREDNISOLONE
     Dosage: 10 MILLIGRAM, QD
     Route: 048
     Dates: start: 20200303, end: 20200331
  10. PREDONINE [Concomitant]
     Active Substance: PREDNISOLONE
     Dosage: 5 MILLIGRAM, QD
     Route: 048
     Dates: start: 20200428, end: 20200611
  11. LAC-B [Concomitant]
     Active Substance: BIFIDOBACTERIUM SPP.
     Indication: COLITIS ULCERATIVE
     Dosage: 3 GRAM, QD
     Route: 048
     Dates: start: 20200120, end: 20200331
  12. MAGMITT [Concomitant]
     Active Substance: MAGNESIUM OXIDE
     Indication: COLITIS ULCERATIVE
     Dosage: 990 MILLIGRAM, QD
     Route: 048
     Dates: start: 20200428, end: 20200611
  13. REMICADE [Suspect]
     Active Substance: INFLIXIMAB
     Indication: COLITIS ULCERATIVE
     Dosage: 400 MILLIGRAM, QD
     Route: 042
     Dates: start: 20200619, end: 20200619
  14. ASACOL [Concomitant]
     Active Substance: MESALAMINE
     Indication: COLITIS ULCERATIVE
     Dosage: 3600 MILLIGRAM, QD
     Route: 048
     Dates: start: 20200602
  15. PREDONINE [Concomitant]
     Active Substance: PREDNISOLONE
     Dosage: 20 MILLIGRAM, QD
     Route: 048
     Dates: start: 20200401, end: 20200414
  16. BIOFERMIN                          /07958301/ [Concomitant]
     Indication: COLITIS ULCERATIVE
     Route: 048
     Dates: start: 20200401
  17. HYDROCORTONE [Concomitant]
     Active Substance: HYDROCORTISONE
     Indication: COLITIS ULCERATIVE
     Route: 065
     Dates: start: 20200619, end: 20200619

REACTIONS (1)
  - Anaphylactic shock [Recovered/Resolved]

NARRATIVE: CASE EVENT DATE: 20200628
